FAERS Safety Report 5666662-6 (Version None)
Quarter: 2008Q1

REPORT INFORMATION
  Report Type: 
  Country: None (occurrence: None)
  Receive Date: 20080315
  Receipt Date: 20071227
  Transmission Date: 20080703
  Serious: No
  Sender: FDA-Public Use
  Company Number: US-ABBOTT-08P-163-0431997-00

PATIENT
  Sex: Male
  Weight: 93 kg

DRUGS (4)
  1. HUMIRA [Suspect]
     Indication: CROHN'S DISEASE
     Route: 058
     Dates: start: 20071001
  2. HUMIRA [Suspect]
     Route: 058
  3. HUMIRA [Suspect]
     Dosage: PEN
     Route: 058
     Dates: start: 20070901, end: 20071001
  4. METOPROLOL SUCCINATE [Concomitant]
     Indication: HYPERTENSION
     Dosage: GENERIC
     Route: 048
     Dates: start: 20071101

REACTIONS (7)
  - CHEST DISCOMFORT [None]
  - ERYTHEMA [None]
  - EYE IRRITATION [None]
  - GLAUCOMA [None]
  - HEAD DISCOMFORT [None]
  - LACRIMATION INCREASED [None]
  - MUSCULOSKELETAL DISCOMFORT [None]
